FAERS Safety Report 4607830-1 (Version None)
Quarter: 2005Q1

REPORT INFORMATION
  Report Type: 
  Country: None (occurrence: None)
  Receive Date: 20050310
  Receipt Date: 20050223
  Transmission Date: 20050727
  Serious: No
  Sender: FDA-Public Use
  Company Number: A01200501023

PATIENT
  Age: 70 Year
  Sex: Male

DRUGS (8)
  1. PLAVIX [Suspect]
     Indication: MYOCARDIAL INFARCTION
     Dosage: 75 MG OD , ORAL
     Route: 048
     Dates: start: 20050218, end: 20050221
  2. ACETYLSALICYLIC ACID SRT [Concomitant]
  3. ENOXAPARIN SODIUM [Concomitant]
  4. MOLSIDOMINE [Concomitant]
  5. ATENOLOL [Concomitant]
  6. RAMIPRIL [Concomitant]
  7. INSULIN [Concomitant]
  8. PRAXILENE (NAFTIDROFURYL OXALATE) [Concomitant]

REACTIONS (3)
  - ECCHYMOSIS [None]
  - PAIN [None]
  - THROMBOCYTHAEMIA [None]
